FAERS Safety Report 25820361 (Version 1)
Quarter: 2025Q3

REPORT INFORMATION
  Report Type: Other
  Country: IN (occurrence: IN)
  Receive Date: 20250919
  Receipt Date: 20250919
  Transmission Date: 20251020
  Serious: Yes (Other)
  Sender: ANI
  Company Number: IN-ANIPHARMA-030561

PATIENT
  Age: 2 Year
  Sex: Female

DRUGS (3)
  1. ZONISAMIDE [Suspect]
     Active Substance: ZONISAMIDE
     Indication: Seizure
  2. VALPROATE [Concomitant]
     Active Substance: VALPROIC ACID
     Indication: Seizure
  3. CLOBAZAM [Concomitant]
     Active Substance: CLOBAZAM
     Indication: Seizure

REACTIONS (1)
  - Cutaneous vasculitis [Recovered/Resolved]
